FAERS Safety Report 26162915 (Version 1)
Quarter: 2025Q4

REPORT INFORMATION
  Report Type: Spontaneous
  Country: EU (occurrence: EU)
  Receive Date: 20251216
  Receipt Date: 20251216
  Transmission Date: 20260118
  Serious: Yes (Other)
  Sender: CHEPLAPHARM
  Company Number: None

PATIENT
  Sex: Female

DRUGS (13)
  1. CAPECITABINE [Suspect]
     Active Substance: CAPECITABINE
     Indication: Product used for unknown indication
     Dosage: UNK
  2. EVEROLIMUS [Suspect]
     Active Substance: EVEROLIMUS
     Indication: Hormone receptor positive breast cancer
     Dosage: UNK
  3. EVEROLIMUS [Suspect]
     Active Substance: EVEROLIMUS
     Indication: Breast cancer metastatic
     Dosage: UNK
  4. EVEROLIMUS [Suspect]
     Active Substance: EVEROLIMUS
     Indication: Human epidermal growth factor receptor negative
     Dosage: UNK
  5. EVEROLIMUS [Suspect]
     Active Substance: EVEROLIMUS
     Indication: PIK3CA-activated mutation
     Dosage: UNK
  6. EVEROLIMUS [Suspect]
     Active Substance: EVEROLIMUS
     Indication: Progesterone receptor assay negative
     Dosage: UNK
  7. FULVESTRANT [Suspect]
     Active Substance: FULVESTRANT
     Indication: Human epidermal growth factor receptor negative
     Dosage: UNK
  8. FULVESTRANT [Suspect]
     Active Substance: FULVESTRANT
     Indication: PIK3CA-activated mutation
     Dosage: UNK
  9. FULVESTRANT [Suspect]
     Active Substance: FULVESTRANT
     Indication: Progesterone receptor assay negative
     Dosage: UNK
  10. FULVESTRANT [Suspect]
     Active Substance: FULVESTRANT
     Indication: Breast cancer metastatic
     Dosage: UNK
  11. FULVESTRANT [Suspect]
     Active Substance: FULVESTRANT
     Indication: Hormone receptor positive breast cancer
     Dosage: UNK
  12. PALBOCICLIB [Suspect]
     Active Substance: PALBOCICLIB
     Indication: Product used for unknown indication
     Dosage: UNK
  13. EXEMESTANE [Suspect]
     Active Substance: EXEMESTANE
     Indication: Product used for unknown indication
     Dosage: UNK

REACTIONS (2)
  - Breast cancer metastatic [Unknown]
  - Malignant neoplasm progression [Unknown]
